FAERS Safety Report 11781885 (Version 2)
Quarter: 2015Q4

REPORT INFORMATION
  Report Type: Spontaneous
  Country: US (occurrence: US)
  Receive Date: 20151126
  Receipt Date: 20151215
  Transmission Date: 20160305
  Serious: Yes (Death)
  Sender: FDA-Public Use
  Company Number: US-PFIZER INC-2015396636

PATIENT
  Age: 64 Year
  Sex: Male

DRUGS (1)
  1. SUTENT [Suspect]
     Active Substance: SUNITINIB MALATE
     Indication: RENAL CANCER
     Dosage: UNK, 1X/DAY
     Dates: start: 201505, end: 201510

REACTIONS (3)
  - Disease progression [Unknown]
  - Renal cancer [Unknown]
  - Death [Fatal]

NARRATIVE: CASE EVENT DATE: 201510
